FAERS Safety Report 18630256 (Version 1)
Quarter: 2020Q4

REPORT INFORMATION
  Report Type: Spontaneous
  Country: AT (occurrence: AT)
  Receive Date: 20201217
  Receipt Date: 20201217
  Transmission Date: 20210114
  Serious: Yes (Other)
  Sender: FDA-Public Use
  Company Number: AT-ELI_LILLY_AND_COMPANY-AT202012006920

PATIENT
  Age: 64 Year
  Sex: Male

DRUGS (24)
  1. RITUXIMAB. [Suspect]
     Active Substance: RITUXIMAB
     Dosage: UNK UNK, CYCLICAL (4 CYCLES WITH R-GDP)
     Route: 065
     Dates: start: 201812
  2. RITUXIMAB. [Suspect]
     Active Substance: RITUXIMAB
     Dosage: UNK UNK, OTHER (BRIDGING THERAPY)
     Route: 065
     Dates: start: 20191205
  3. CISPLATIN. [Suspect]
     Active Substance: CISPLATIN
     Indication: DIFFUSE LARGE B-CELL LYMPHOMA
     Dosage: UNK UNK, CYCLICAL (4 CYCLES R-GDP)
     Route: 065
     Dates: start: 201812
  4. DEXAMETHASONE. [Suspect]
     Active Substance: DEXAMETHASONE
     Indication: DIFFUSE LARGE B-CELL LYMPHOMA
     Dosage: UNK, CYCLICAL (4 CYCLES R-GDP)
     Route: 065
     Dates: start: 201812
  5. BENDAMUSTINE [Suspect]
     Active Substance: BENDAMUSTINE
     Indication: DIFFUSE LARGE B-CELL LYMPHOMA
     Dosage: UNK, CYCLICAL (3 CYCLES)
     Route: 065
     Dates: start: 201809
  6. POLATUZUMAB VEDOTIN. [Suspect]
     Active Substance: POLATUZUMAB VEDOTIN
     Dosage: UNK, CYCLICAL (4 CYCLES RITUXIMAB/POLATUZUMAB)
     Route: 065
     Dates: start: 202005, end: 202007
  7. GEMCITABINE HYDROCHLORIDE. [Suspect]
     Active Substance: GEMCITABINE HYDROCHLORIDE
     Indication: DIFFUSE LARGE B-CELL LYMPHOMA
     Dosage: UNK UNK, CYCLICAL (4 CYCLES R-GDP)
     Route: 065
     Dates: start: 201812
  8. VINCRISTINE SULFATE. [Suspect]
     Active Substance: VINCRISTINE SULFATE
     Indication: DIFFUSE LARGE B-CELL LYMPHOMA
     Dosage: UNK UNK, CYCLICAL (6 CYCLES R-CHOP)
     Route: 065
     Dates: start: 201611, end: 201704
  9. POLATUZUMAB VEDOTIN. [Suspect]
     Active Substance: POLATUZUMAB VEDOTIN
     Dosage: UNK, CYCLICAL (2 ADDITIONAL CYCLES R-POLA)
     Route: 065
     Dates: start: 202009, end: 202010
  10. RITUXIMAB. [Suspect]
     Active Substance: RITUXIMAB
     Indication: DIFFUSE LARGE B-CELL LYMPHOMA
     Dosage: UNK UNK, CYCLICAL 96 CYCLES R-CHOP)
     Route: 065
     Dates: start: 201611, end: 201704
  11. DOXORUBICIN [Suspect]
     Active Substance: DOXORUBICIN
     Indication: DIFFUSE LARGE B-CELL LYMPHOMA
     Dosage: UNK, CYCLICAL (6 CYCLES R-CHOP)
     Route: 065
     Dates: start: 201611, end: 201704
  12. CARMUSTINE. [Suspect]
     Active Substance: CARMUSTINE
     Indication: DIFFUSE LARGE B-CELL LYMPHOMA
     Dosage: UNK, OTHER (HIGH DOSE BEAM)
     Route: 065
     Dates: start: 201903
  13. CYTARABINE. [Suspect]
     Active Substance: CYTARABINE
     Indication: DIFFUSE LARGE B-CELL LYMPHOMA
     Dosage: UNK, OTHER (HIGH DOSE BEAM)
     Route: 065
     Dates: start: 201903
  14. RITUXIMAB. [Suspect]
     Active Substance: RITUXIMAB
     Dosage: UNK UNK, CYCLICAL (2 ADDITIONAL CYCLES R-POLA)
     Route: 065
     Dates: start: 202009, end: 202010
  15. PREDNISONE. [Suspect]
     Active Substance: PREDNISONE
     Indication: DIFFUSE LARGE B-CELL LYMPHOMA
     Dosage: UNK, CYCLICAL (6 CYCLES R-CHOP)
     Route: 065
     Dates: start: 201611, end: 201704
  16. MELPHALAN. [Suspect]
     Active Substance: MELPHALAN
     Indication: DIFFUSE LARGE B-CELL LYMPHOMA
     Dosage: UNK, OTHER (HIGH DOSE BEAM)
     Route: 065
     Dates: start: 201903
  17. POLATUZUMAB VEDOTIN. [Suspect]
     Active Substance: POLATUZUMAB VEDOTIN
     Indication: DIFFUSE LARGE B-CELL LYMPHOMA
     Dosage: UNK, OTHER (BRIDGING THERAPY)
     Route: 065
     Dates: start: 20191205
  18. ETOPOSIDE. [Suspect]
     Active Substance: ETOPOSIDE
     Indication: DIFFUSE LARGE B-CELL LYMPHOMA
     Dosage: UNK, OTHER (HIGH DOSE BEAM)
     Route: 065
     Dates: start: 201903
  19. CYCLOPHOSPHAMIDE. [Suspect]
     Active Substance: CYCLOPHOSPHAMIDE
     Indication: LYMPHOCYTE ADOPTIVE THERAPY
     Dosage: UNK, CYCLICAL (6 CYCLES R-CHOP)
     Route: 065
     Dates: start: 201611, end: 201704
  20. BENDAMUSTINE [Suspect]
     Active Substance: BENDAMUSTINE
     Dosage: UNK, OTHER (BRIDGING THERAPY)
     Route: 065
     Dates: start: 20191205
  21. OBINUTUZUMAB. [Suspect]
     Active Substance: OBINUTUZUMAB
     Indication: DIFFUSE LARGE B-CELL LYMPHOMA
     Dosage: UNK, CYCLICAL (3 CYCLES)
     Route: 065
     Dates: start: 201809
  22. RITUXIMAB. [Suspect]
     Active Substance: RITUXIMAB
     Dosage: UNK UNK, CYCLICAL (4 CYCLES RITUXIMAB/POLATUZUMAB)
     Route: 065
     Dates: start: 202005, end: 202007
  23. FLUDARABINE [Suspect]
     Active Substance: FLUDARABINE PHOSPHATE
     Indication: LYMPHOCYTE ADOPTIVE THERAPY
     Dosage: UNK, UNKNOWN
     Route: 065
     Dates: start: 20191223, end: 20191224
  24. CYCLOPHOSPHAMIDE. [Suspect]
     Active Substance: CYCLOPHOSPHAMIDE
     Indication: DIFFUSE LARGE B-CELL LYMPHOMA
     Dosage: UNK, OTHER (LYMPHODEPLETING CHEMOTHERAPY)
     Route: 065
     Dates: start: 20191223, end: 20191224

REACTIONS (3)
  - Myelosuppression [Unknown]
  - Malignant neoplasm progression [Unknown]
  - Off label use [Unknown]

NARRATIVE: CASE EVENT DATE: 20200803
